FAERS Safety Report 9858112 (Version 3)
Quarter: 2014Q3

REPORT INFORMATION
  Report Type: Report from Study
  Country: CA (occurrence: CA)
  Receive Date: 20140131
  Receipt Date: 20140818
  Transmission Date: 20150326
  Serious: Yes (Hospitalization, Other)
  Sender: FDA-Public Use
  Company Number: CA-JNJFOC-20140116076

PATIENT
  Age: 59 Year
  Sex: Male
  Weight: 110 kg

DRUGS (5)
  1. REMICADE [Suspect]
     Active Substance: INFLIXIMAB
     Indication: ANKYLOSING SPONDYLITIS
     Route: 042
     Dates: start: 20130429
  2. REMICADE [Suspect]
     Active Substance: INFLIXIMAB
     Indication: ANKYLOSING SPONDYLITIS
     Route: 042
     Dates: start: 20140808
  3. REMICADE [Suspect]
     Active Substance: INFLIXIMAB
     Indication: CROHN^S DISEASE
     Route: 042
     Dates: start: 20140808
  4. DYE (CONTRAST MEDIA) [Suspect]
     Active Substance: UNSPECIFIED INGREDIENT
     Indication: BONE SCAN
     Route: 065
     Dates: start: 20140110
  5. REMICADE [Suspect]
     Active Substance: INFLIXIMAB
     Indication: CROHN^S DISEASE
     Route: 042
     Dates: start: 20130429

REACTIONS (3)
  - Prostate cancer metastatic [Not Recovered/Not Resolved]
  - Hypersensitivity [Unknown]
  - Bone cancer [Recovered/Resolved]

NARRATIVE: CASE EVENT DATE: 20140110
